FAERS Safety Report 14326551 (Version 2)
Quarter: 2018Q1

REPORT INFORMATION
  Report Type: Report from Study
  Country: KR (occurrence: KR)
  Receive Date: 20171227
  Receipt Date: 20180101
  Transmission Date: 20180509
  Serious: Yes (Hospitalization)
  Sender: FDA-Public Use
  Company Number: KR-ROCHE-2044480

PATIENT
  Age: 41 Year
  Sex: Male
  Weight: 73 kg

DRUGS (10)
  1. ATEZOLIZUMAB. [Suspect]
     Active Substance: ATEZOLIZUMAB
     Indication: TRANSITIONAL CELL CARCINOMA
     Dosage: DATE OF MOST RECENT DOSE OF ATEZOLIZUMAB PRIOR TO SAE ONSET: 04/DEC/2017
     Route: 042
     Dates: start: 20171204
  2. REFRESH PLUS [Concomitant]
     Active Substance: CARBOXYMETHYLCELLULOSE SODIUM
     Indication: CONJUNCTIVITIS ALLERGIC
     Dosage: 0.5 % EYE DROPS
     Route: 065
     Dates: start: 20171122
  3. LOPERAMIDE [Concomitant]
     Active Substance: LOPERAMIDE
     Indication: DIARRHOEA
     Route: 048
     Dates: start: 20171218
  4. AMLODIPINE [Concomitant]
     Active Substance: AMLODIPINE BESYLATE
     Indication: HYPERTENSION
     Route: 048
     Dates: start: 20160620
  5. OLOPATADINE. [Concomitant]
     Active Substance: OLOPATADINE
     Indication: CONJUNCTIVITIS ALLERGIC
     Route: 065
     Dates: start: 20171122
  6. COBIMETINIB. [Suspect]
     Active Substance: COBIMETINIB
     Indication: TRANSITIONAL CELL CARCINOMA
     Dosage: 3 TABLETS OF 20MG EACH?DATE OF MOST RECENT DOSE OF COBIMETINIB PRIOR TO AE ONSET: 17/DEC/2017
     Route: 048
     Dates: start: 20171204
  7. BISOPROLOL [Concomitant]
     Active Substance: BISOPROLOL
     Indication: HYPERTENSION
     Route: 048
     Dates: start: 20160719
  8. CELECOXIB. [Concomitant]
     Active Substance: CELECOXIB
     Indication: PYREXIA
     Route: 048
     Dates: start: 20171218
  9. TADALAFIL [Concomitant]
     Active Substance: TADALAFIL
     Indication: DYSURIA
     Route: 048
     Dates: start: 20161201
  10. PANTOPRAZOLE [Concomitant]
     Active Substance: PANTOPRAZOLE
     Route: 048
     Dates: start: 20171218

REACTIONS (1)
  - Encephalitis autoimmune [Not Recovered/Not Resolved]

NARRATIVE: CASE EVENT DATE: 20171219
